FAERS Safety Report 23015054 (Version 1)
Quarter: 2023Q4

REPORT INFORMATION
  Report Type: Spontaneous
  Country: IN (occurrence: IN)
  Receive Date: 20231002
  Receipt Date: 20231002
  Transmission Date: 20240109
  Serious: Yes (Death, Life-Threatening, Other)
  Sender: FDA-Public Use
  Company Number: IN-PFIZER INC-PV202300161639

PATIENT
  Age: 3 Decade
  Sex: Female

DRUGS (2)
  1. CYTARABINE [Suspect]
     Active Substance: CYTARABINE
     Indication: Acute myeloid leukaemia
     Dosage: 100 MG/M2, 2X/DAY OVER 12 HOURS
     Route: 042
  2. DAUNORUBICIN [Suspect]
     Active Substance: DAUNORUBICIN
     Indication: Acute myeloid leukaemia
     Dosage: 60 MG/M2, 1X/DAY IN 250ML NORMAL SALINE OVER 3HOURS

REACTIONS (3)
  - Pulmonary alveolar haemorrhage [Fatal]
  - Respiratory distress [Fatal]
  - Haemoptysis [Unknown]
